FAERS Safety Report 20652988 (Version 1)
Quarter: 2022Q1

REPORT INFORMATION
  Report Type: Spontaneous
  Country: NO (occurrence: NO)
  Receive Date: 20220330
  Receipt Date: 20220330
  Transmission Date: 20220423
  Serious: Yes (Hospitalization, Other)
  Sender: FDA-Public Use
  Company Number: NO-CURRAX PHARMACEUTICALS LLC-NO-2022CUR021078

PATIENT

DRUGS (3)
  1. BUPROPION HYDROCHLORIDE\NALTREXONE HYDROCHLORIDE [Suspect]
     Active Substance: BUPROPION HYDROCHLORIDE\NALTREXONE HYDROCHLORIDE
     Indication: Overweight
     Dosage: 2 DF, 1 IN 12 HR
     Route: 048
     Dates: start: 20220127, end: 20220226
  2. CHOLECALCIFEROL [Concomitant]
     Active Substance: CHOLECALCIFEROL
     Indication: Product used for unknown indication
     Dosage: 1 TABLET MORNING
     Route: 048
     Dates: start: 20220124
  3. BETULA PENDULA POLLEN [Concomitant]
     Active Substance: BETULA PENDULA POLLEN
     Indication: Seasonal allergy
     Dosage: ITULAZAX SMELTETAB 12 SQ-BET 1 TABLET DAILY
     Route: 048
     Dates: start: 20220124

REACTIONS (6)
  - Foaming at mouth [Recovered/Resolved]
  - Muscle spasms [Recovered/Resolved]
  - Urinary incontinence [Recovered/Resolved]
  - Tongue biting [Recovered/Resolved]
  - Seizure [Recovered/Resolved]
  - Amnesia [Unknown]

NARRATIVE: CASE EVENT DATE: 20220226
